FAERS Safety Report 10398499 (Version 1)
Quarter: 2014Q3

REPORT INFORMATION
  Report Type: Spontaneous
  Country: US (occurrence: US)
  Receive Date: 20140821
  Receipt Date: 20140821
  Transmission Date: 20150326
  Serious: No
  Sender: FDA-Public Use
  Company Number: US-ZOGENIX, INC.-2014ZX000168

PATIENT
  Age: 36 Year
  Sex: Male
  Weight: 97.61 kg

DRUGS (3)
  1. ZOHYDRO [Suspect]
     Active Substance: HYDROCODONE BITARTRATE
     Dates: start: 20140529
  2. ZOHYDRO [Suspect]
     Active Substance: HYDROCODONE BITARTRATE
     Indication: PAIN
     Dates: start: 201404, end: 20140504
  3. ZOHYDRO [Suspect]
     Active Substance: HYDROCODONE BITARTRATE
     Dates: start: 20140505, end: 20140528

REACTIONS (1)
  - Breakthrough pain [Not Recovered/Not Resolved]

NARRATIVE: CASE EVENT DATE: 201404
